FAERS Safety Report 26087679 (Version 1)
Quarter: 2025Q4

REPORT INFORMATION
  Report Type: Spontaneous
  Country: US (occurrence: None)
  Receive Date: 20251125
  Receipt Date: 20251125
  Transmission Date: 20260118
  Serious: Yes (Hospitalization)
  Sender: FDA-CTU
  Company Number: None

PATIENT
  Age: 86 Year
  Sex: Female

DRUGS (1)
  1. NILOTINIB [Suspect]
     Active Substance: NILOTINIB
     Dosage: 150MG 2 BID

REACTIONS (8)
  - Drug hypersensitivity [None]
  - Pancreatitis [None]
  - Asthenia [None]
  - Dyspnoea [None]
  - Visual impairment [None]
  - Renal cyst [None]
  - Pancreatic cyst [None]
  - Eye pain [None]
